FAERS Safety Report 7254949-5 (Version None)
Quarter: 2011Q1

REPORT INFORMATION
  Report Type: 
  Country: None (occurrence: None)
  Receive Date: 20110129
  Receipt Date: 20100208
  Transmission Date: 20110831
  Serious: No
  Sender: FDA-Public Use
  Company Number: US-ABBOTT-10P-163-0624825-00

PATIENT
  Sex: Female
  Weight: 49.94 kg

DRUGS (3)
  1. DEPO BIRTH CONTROL [Concomitant]
     Indication: CONTRACEPTION
  2. HUMIRA [Suspect]
     Route: 058
     Dates: start: 20100125, end: 20100125
  3. HUMIRA [Suspect]
     Indication: PSORIASIS
     Dates: start: 20100203

REACTIONS (1)
  - INJECTION SITE PAIN [None]
